FAERS Safety Report 6695741-X (Version None)
Quarter: 2010Q2

REPORT INFORMATION
  Report Type: 
  Country: None (occurrence: None)
  Receive Date: 20100426
  Receipt Date: 20100408
  Transmission Date: 20101027
  Serious: No
  Sender: FDA-Public Use
  Company Number: US-BAYER-201019901NA

PATIENT
  Age: 25 Year
  Sex: Female

DRUGS (1)
  1. MIRENA [Suspect]
     Indication: CONTRACEPTION
     Dosage: FREQUENCY: CONTINUOUS
     Route: 015
     Dates: start: 20100330, end: 20100407

REACTIONS (4)
  - ABDOMINAL PAIN LOWER [None]
  - DEVICE EXPULSION [None]
  - POST PROCEDURAL HAEMORRHAGE [None]
  - VULVOVAGINAL PAIN [None]
